FAERS Safety Report 9461428 (Version 1)
Quarter: 2013Q3

REPORT INFORMATION
  Report Type: Spontaneous
  Country: US (occurrence: None)
  Receive Date: 20130814
  Receipt Date: 20130814
  Transmission Date: 20140515
  Serious: Yes (Other)
  Sender: FDA-Public Use
  Company Number: None

PATIENT
  Age: 32 Year
  Sex: Female
  Weight: 108.86 kg

DRUGS (1)
  1. BUPROPION [Suspect]
     Indication: ANTIDEPRESSANT THERAPY
     Dosage: 1 PILL TWICE DAILY TAKEN BY MOUTH
     Route: 048

REACTIONS (9)
  - Oropharyngeal pain [None]
  - Myalgia [None]
  - Abnormal dreams [None]
  - Nightmare [None]
  - Agitation [None]
  - Restlessness [None]
  - Suicidal ideation [None]
  - Depression [None]
  - Condition aggravated [None]
